FAERS Safety Report 4947389-2 (Version None)
Quarter: 2006Q1

REPORT INFORMATION
  Report Type: 
  Country: None (occurrence: None)
  Receive Date: 20060317
  Receipt Date: 20060314
  Transmission Date: 20060701
  Serious: Yes (Hospitalization)
  Sender: FDA-Public Use
  Company Number: US-MERCK-0603USA02426

PATIENT

DRUGS (2)
  1. CRIXIVAN [Suspect]
     Route: 048
  2. KALETRA [Concomitant]
     Route: 065

REACTIONS (2)
  - GENERAL SYMPTOM [None]
  - NEPHROLITHIASIS [None]
